FAERS Safety Report 16347668 (Version 12)
Quarter: 2020Q4

REPORT INFORMATION
  Report Type: Spontaneous
  Country: JP (occurrence: JP)
  Receive Date: 20190523
  Receipt Date: 20201019
  Transmission Date: 20210113
  Serious: Yes (Hospitalization, Other)
  Sender: FDA-Public Use
  Company Number: JP-BRISTOL-MYERS SQUIBB COMPANY-BMS-2018-114352

PATIENT
  Age: 75 Year
  Sex: Male

DRUGS (4)
  1. OPDIVO [Suspect]
     Active Substance: NIVOLUMAB
     Indication: METASTATIC RENAL CELL CARCINOMA
     Dosage: 240 MILLIGRAM
     Route: 041
     Dates: start: 20180921, end: 20180921
  2. OPDIVO [Suspect]
     Active Substance: NIVOLUMAB
     Dosage: UNK UNK, Q2WK
     Route: 041
  3. ZOLEDRONIC ACID [Concomitant]
     Active Substance: ZOLEDRONIC ACID
     Indication: METASTASES TO BONE
     Dosage: UNK, Q4WK
     Route: 042
  4. YERVOY [Suspect]
     Active Substance: IPILIMUMAB
     Indication: METASTATIC RENAL CELL CARCINOMA
     Dosage: 1 MG/KG, UNK
     Route: 041
     Dates: start: 20180921

REACTIONS (14)
  - Vomiting [Unknown]
  - Decreased appetite [Recovered/Resolved]
  - Diarrhoea [Recovering/Resolving]
  - Hepatic function abnormal [Recovered/Resolved]
  - Brain oedema [Unknown]
  - Sepsis [Recovering/Resolving]
  - Colitis [Recovered/Resolved]
  - Rash [Unknown]
  - Escherichia bacteraemia [Unknown]
  - Malignant neoplasm progression [Unknown]
  - Drug eruption [Recovered/Resolved]
  - Chronic gastritis [Recovering/Resolving]
  - Nausea [Recovered/Resolved]
  - Erythema [Recovering/Resolving]

NARRATIVE: CASE EVENT DATE: 201810
